FAERS Safety Report 6520642-7 (Version None)
Quarter: 2009Q4

REPORT INFORMATION
  Report Type: 
  Country: None (occurrence: None)
  Receive Date: 20091229
  Receipt Date: 20090914
  Transmission Date: 20100525
  Serious: Yes (Other)
  Sender: FDA-Public Use
  Company Number: TR-PFIZER INC-2009310977

PATIENT
  Age: 37 Year
  Sex: Female

DRUGS (4)
  1. AROMASIN [Suspect]
     Indication: BREAST CANCER METASTATIC
     Dosage: UNK
  2. IXABEPILONE [Suspect]
     Indication: BREAST CANCER METASTATIC
     Dosage: 40 MG/M2, EVERY 3 WEEKS
     Route: 042
     Dates: start: 20090201, end: 20090501
  3. XELODA [Suspect]
     Indication: BREAST CANCER METASTATIC
     Dosage: UNK
  4. ZOLADEX [Concomitant]

REACTIONS (2)
  - BONE MARROW FAILURE [None]
  - NEUROPATHY PERIPHERAL [None]
